FAERS Safety Report 7549464-5 (Version None)
Quarter: 2011Q2

REPORT INFORMATION
  Report Type: 
  Country: None (occurrence: None)
  Receive Date: 20110608
  Receipt Date: 20110530
  Transmission Date: 20111010
  Serious: Yes (Other)
  Sender: FDA-Public Use
  Company Number: 2011SP024766

PATIENT
  Age: 50 Year
  Sex: Male

DRUGS (1)
  1. REBETOL [Suspect]
     Indication: HEPATITIS C
     Dosage: 200 MG
     Dates: start: 20110101, end: 20110303

REACTIONS (2)
  - HYPERTHYROIDISM [None]
  - TACHYCARDIA [None]
